FAERS Safety Report 16377865 (Version 1)
Quarter: 2019Q2

REPORT INFORMATION
  Report Type: Spontaneous
  Country: US (occurrence: US)
  Receive Date: 20190531
  Receipt Date: 20190531
  Transmission Date: 20190711
  Serious: No
  Sender: FDA-Public Use
  Company Number: US-ASTRAZENECA-2019SE79532

PATIENT
  Age: 72 Year
  Sex: Female

DRUGS (2)
  1. PRILOSEC OTC [Suspect]
     Active Substance: OMEPRAZOLE MAGNESIUM
     Dosage: DOCTOR SAID TO DOUBLE UP ON THE PRILOSEC OTC WHICH I DID FOR 2 NIGHTS
     Route: 048
  2. PRILOSEC OTC [Suspect]
     Active Substance: OMEPRAZOLE MAGNESIUM
     Dosage: 1 TABLET, DAILY
     Route: 048
     Dates: end: 20190513

REACTIONS (7)
  - Eructation [Recovering/Resolving]
  - Off label use [Unknown]
  - Fatigue [Recovering/Resolving]
  - Flatulence [Recovering/Resolving]
  - Prescribed overdose [Unknown]
  - Nausea [Recovering/Resolving]
  - Inappropriate schedule of product administration [Unknown]
